FAERS Safety Report 5444451-5 (Version None)
Quarter: 2007Q3

REPORT INFORMATION
  Report Type: 
  Country: None (occurrence: None)
  Receive Date: 20070906
  Receipt Date: 20070904
  Transmission Date: 20080115
  Serious: Yes (Hospitalization)
  Sender: FDA-Public Use
  Company Number: HQWYE244316MAY07

PATIENT
  Age: 40 Year
  Sex: Female

DRUGS (3)
  1. CORDARONE [Suspect]
     Indication: SUPRAVENTRICULAR TACHYCARDIA
     Dosage: 3 VIALS IN 100 ML PHYSIOLOGICAL SERUM INFUSION SOLUTION
     Route: 042
     Dates: start: 20070101, end: 20070101
  2. CORDARONE [Suspect]
     Dosage: NEW INFUSION (DOSE NOT SPECIFIED)
     Route: 042
     Dates: start: 20070101
  3. ENOXAPARIN SODIUM [Suspect]
     Indication: ATRIAL FIBRILLATION
     Route: 042
     Dates: start: 20070101, end: 20070101

REACTIONS (4)
  - CHEST PAIN [None]
  - DRUG ADMINISTRATION ERROR [None]
  - DRUG CHEMICAL INCOMPATIBILITY [None]
  - TACHYCARDIA PAROXYSMAL [None]
